FAERS Safety Report 5510497-1 (Version None)
Quarter: 2007Q4

REPORT INFORMATION
  Report Type: 
  Country: None (occurrence: None)
  Receive Date: 20071108
  Receipt Date: 20071102
  Transmission Date: 20080405
  Serious: Yes (Hospitalization)
  Sender: FDA-Public Use
  Company Number: JP-ABBOTT-07P-087-0423193-00

PATIENT
  Age: 12 Month
  Sex: Female

DRUGS (1)
  1. CEFZON [Suspect]
     Indication: CELLULITIS
     Route: 048
     Dates: start: 20071022, end: 20071022

REACTIONS (4)
  - ERYTHEMA [None]
  - PYREXIA [None]
  - TONSILLAR DISORDER [None]
  - UNEVALUABLE EVENT [None]
